FAERS Safety Report 10334620 (Version 3)
Quarter: 2015Q1

REPORT INFORMATION
  Report Type: Spontaneous
  Country: US (occurrence: US)
  Receive Date: 20140723
  Receipt Date: 20150119
  Transmission Date: 20150720
  Serious: No
  Sender: FDA-Public Use
  Company Number: US-UNITED THERAPEUTICS-UNT-2014-001025

PATIENT
  Sex: Female
  Weight: 106.58 kg

DRUGS (4)
  1. DILAUDID [Suspect]
     Active Substance: HYDROMORPHONE HYDROCHLORIDE
     Indication: PRODUCT USED FOR UNKNOWN INDICATION
     Route: 048
  2. REMODULIN [Suspect]
     Active Substance: TREPROSTINIL
     Indication: COR PULMONALE CHRONIC
     Dosage: 0.064 ?G/KG/MIN, CONTINUING
     Route: 041
     Dates: start: 20070401
  3. MIRALAX [Suspect]
     Active Substance: POLYETHYLENE GLYCOL 3350
     Indication: PRODUCT USED FOR UNKNOWN INDICATION
  4. COUMADIN [Concomitant]
     Active Substance: WARFARIN SODIUM
     Indication: PRODUCT USED FOR UNKNOWN INDICATION

REACTIONS (10)
  - Ear tube removal [Unknown]
  - Back pain [Unknown]
  - Constipation [Unknown]
  - Condition aggravated [Unknown]
  - Malaise [Unknown]
  - Muscular weakness [Unknown]
  - Ascites [Unknown]
  - Musculoskeletal pain [Unknown]
  - Chest pain [Unknown]
  - Diarrhoea [Unknown]
